FAERS Safety Report 7370482-4 (Version None)
Quarter: 2011Q1

REPORT INFORMATION
  Report Type: 
  Country: None (occurrence: None)
  Receive Date: 20110323
  Receipt Date: 20110316
  Transmission Date: 20110831
  Serious: Yes (Other)
  Sender: FDA-Public Use
  Company Number: US-BAXTER-2011BH007274

PATIENT

DRUGS (10)
  1. DEXAMETHASONE [Suspect]
     Indication: MULTIPLE MYELOMA
     Route: 065
  2. CISPLATIN [Suspect]
     Indication: MULTIPLE MYELOMA
     Route: 065
  3. DOXORUBICIN GENERIC [Suspect]
     Indication: MULTIPLE MYELOMA
     Route: 065
  4. H2-RECEPTOR ANTAGONISTS [Concomitant]
     Indication: PROPHYLAXIS AGAINST GASTROINTESTINAL ULCER
     Route: 065
  5. ETOPOSIDE [Suspect]
     Indication: MULTIPLE MYELOMA
     Route: 065
  6. MELPHALAN [Suspect]
     Indication: MULTIPLE MYELOMA
     Route: 065
  7. THALIDOMIDE [Suspect]
     Indication: MULTIPLE MYELOMA
     Route: 065
  8. ANTIBIOTICS [Concomitant]
     Indication: ANTIBIOTIC PROPHYLAXIS
     Route: 065
  9. BORTEZOMIB [Suspect]
     Indication: MULTIPLE MYELOMA
     Route: 065
  10. CYCLOPHOSPHAMIDE [Suspect]
     Indication: MULTIPLE MYELOMA
     Route: 065

REACTIONS (1)
  - GASTROINTESTINAL INFLAMMATION [None]
